FAERS Safety Report 12044270 (Version 2)
Quarter: 2016Q1

REPORT INFORMATION
  Report Type: Spontaneous
  Country: US (occurrence: US)
  Receive Date: 20160208
  Receipt Date: 20160212
  Transmission Date: 20160526
  Serious: Yes (Other)
  Sender: FDA-Public Use
  Company Number: US-BAYER-2016-017917

PATIENT
  Age: 86 Year
  Sex: Female
  Weight: 72.56 kg

DRUGS (5)
  1. ALEVE [Suspect]
     Active Substance: NAPROXEN SODIUM
     Indication: ARTHRITIS
     Dosage: 1 DF, QD
     Route: 048
     Dates: start: 1998, end: 2015
  2. BUSPIRONE [Concomitant]
     Active Substance: BUSPIRONE HYDROCHLORIDE
  3. ATENOLOL. [Concomitant]
     Active Substance: ATENOLOL
  4. TRAMADOL. [Concomitant]
     Active Substance: TRAMADOL
  5. MILK OF MAGNESIA ORIGINAL [Suspect]
     Active Substance: MAGNESIUM HYDROXIDE
     Indication: CONSTIPATION
     Dosage: 2 TABLESPOONS, QOD
     Route: 048
     Dates: start: 1970

REACTIONS (5)
  - Drug-induced liver injury [None]
  - Product use issue [None]
  - Product use issue [None]
  - Heart rate increased [None]
  - Wrong technique in product usage process [None]

NARRATIVE: CASE EVENT DATE: 1970
